FAERS Safety Report 9892877 (Version 2)
Quarter: 2014Q1

REPORT INFORMATION
  Report Type: Report from Study
  Country: US (occurrence: US)
  Receive Date: 20140213
  Receipt Date: 20140213
  Transmission Date: 20141002
  Serious: Yes (Other)
  Sender: FDA-Public Use
  Company Number: US-PFIZER INC-2013214068

PATIENT
  Age: 74 Year
  Sex: Female
  Weight: 72.56 kg

DRUGS (6)
  1. ENBREL [Suspect]
     Indication: RHEUMATOID ARTHRITIS
     Dosage: 50 MG, EVERY OTHER WEEK
     Route: 058
     Dates: start: 2011, end: 20130430
  2. METHOTREXATE SODIUM [Suspect]
     Dosage: 25 MG, QWK
     Route: 048
     Dates: start: 200209
  3. TYLENOL [Concomitant]
     Dosage: UNK, AS NECESSARY
  4. FOLIC ACID [Concomitant]
     Dosage: 1 MG, QD
  5. VIT B12 [Concomitant]
     Dosage: 1200 MUG, UNK
  6. CALCIUM + VIT D [Concomitant]
     Dosage: UNK, TID

REACTIONS (7)
  - Cellulitis [Recovered/Resolved]
  - Immunosuppression [Unknown]
  - Infection [Recovered/Resolved]
  - Impaired healing [Recovered/Resolved]
  - Skin ulcer [Recovered/Resolved]
  - Pain in extremity [Recovered/Resolved]
  - Scar [Recovered/Resolved]
